FAERS Safety Report 17699400 (Version 1)
Quarter: 2020Q2

REPORT INFORMATION
  Report Type: Spontaneous
  Country: US (occurrence: US)
  Receive Date: 20200423
  Receipt Date: 20200423
  Transmission Date: 20200714
  Serious: Yes (Hospitalization, Other)
  Sender: FDA-Public Use
  Company Number: US-PFIZER INC-2020162878

PATIENT
  Age: 45 Year
  Sex: Male
  Weight: 38.55 kg

DRUGS (1)
  1. DILANTIN [Suspect]
     Active Substance: PHENYTOIN
     Dosage: UNK

REACTIONS (4)
  - Malaise [Unknown]
  - Internal haemorrhage [Unknown]
  - Seizure [Unknown]
  - Intellectual disability [Unknown]
